FAERS Safety Report 6460157-8 (Version None)
Quarter: 2009Q4

REPORT INFORMATION
  Report Type: 
  Country: None (occurrence: None)
  Receive Date: 20091129
  Receipt Date: 20091019
  Transmission Date: 20100525
  Serious: Yes (Other)
  Sender: FDA-Public Use
  Company Number: US-TYCO HEALTHCARE/MALLINCKRODT-T200901744

PATIENT

DRUGS (1)
  1. DEXTROAMPHETAMINE AND AMPHETAMINE MIXED SALTS [Suspect]
     Dosage: 20 MG, QD

REACTIONS (1)
  - ACUTE MYOCARDIAL INFARCTION [None]
